FAERS Safety Report 7747672-1 (Version None)
Quarter: 2011Q3

REPORT INFORMATION
  Report Type: 
  Country: None (occurrence: None)
  Receive Date: 20110909
  Receipt Date: 20110826
  Transmission Date: 20111222
  Serious: Yes (Other)
  Sender: FDA-Public Use
  Company Number: EU-2011-10161

PATIENT
  Age: 70 Year
  Sex: Male

DRUGS (3)
  1. PLETAL [Suspect]
     Dosage: ,   , ORAL
     Route: 048
     Dates: start: 20110812
  2. DICLOFENAC SODIUM [Concomitant]
  3. SIMVASTATIN [Concomitant]

REACTIONS (3)
  - PULMONARY EMBOLISM [None]
  - TACHYCARDIA [None]
  - HYPERHIDROSIS [None]
